FAERS Safety Report 5796773-6 (Version None)
Quarter: 2008Q2

REPORT INFORMATION
  Report Type: 
  Country: None (occurrence: None)
  Receive Date: 20080630
  Receipt Date: 20080630
  Transmission Date: 20081010
  Serious: Yes (Hospitalization)
  Sender: FDA-Public Use
  Company Number: None

PATIENT
  Age: 20 Year
  Sex: Female
  Weight: 56.8 kg

DRUGS (14)
  1. VANCOMYCIN [Suspect]
     Indication: PYREXIA
     Dosage: 1.25 GM Q8H IV BOLUS
     Route: 040
     Dates: start: 20080329, end: 20080407
  2. VANCOMYCIN [Suspect]
     Indication: STREPTOCOCCAL BACTERAEMIA
     Dosage: 1.25 GM Q8H IV BOLUS
     Route: 040
     Dates: start: 20080329, end: 20080407
  3. ZOSYN [Suspect]
     Indication: PYREXIA
     Dosage: 3.375 GM Q4H IV BOLUS
     Route: 040
     Dates: start: 20080329, end: 20080407
  4. ZOSYN [Suspect]
     Indication: STREPTOCOCCAL BACTERAEMIA
     Dosage: 3.375 GM Q4H IV BOLUS
     Route: 040
     Dates: start: 20080329, end: 20080407
  5. ASPIRIN [Concomitant]
  6. CIPROFLOXACIN [Concomitant]
  7. CLINDAMYCIN HCL [Concomitant]
  8. DEXAMETHASONE [Concomitant]
  9. FLUCONAZOLE [Concomitant]
  10. FUROSEMIDE [Concomitant]
  11. LABETALOL HCL [Concomitant]
  12. LORAZEPAM [Concomitant]
  13. METOCLOPRAMIDE [Concomitant]
  14. PIPERACILLIN AND TAZOBACTAM [Concomitant]

REACTIONS (1)
  - NEPHROPATHY TOXIC [None]
